FAERS Safety Report 7443967-X (Version None)
Quarter: 2011Q2

REPORT INFORMATION
  Report Type: 
  Country: None (occurrence: None)
  Receive Date: 20110429
  Receipt Date: 20110419
  Transmission Date: 20111010
  Serious: No
  Sender: FDA-Public Use
  Company Number: US-BIOGENIDEC-2010BI021772

PATIENT
  Age: 37 Year
  Sex: Female

DRUGS (1)
  1. TYSABRI [Suspect]
     Indication: MULTIPLE SCLEROSIS
     Route: 042
     Dates: start: 20070613

REACTIONS (6)
  - BLOOD POTASSIUM DECREASED [None]
  - VITAMIN B12 DECREASED [None]
  - VEIN DISORDER [None]
  - WEIGHT DECREASED [None]
  - POOR VENOUS ACCESS [None]
  - VITAMIN D DECREASED [None]
